FAERS Safety Report 20058284 (Version 3)
Quarter: 2022Q2

REPORT INFORMATION
  Report Type: Spontaneous
  Country: US (occurrence: US)
  Receive Date: 20211111
  Receipt Date: 20220517
  Transmission Date: 20220721
  Serious: No
  Sender: FDA-Public Use
  Company Number: US-PFIZER INC-202101472234

PATIENT
  Age: 63 Year
  Sex: Female

DRUGS (1)
  1. IBRANCE [Suspect]
     Active Substance: PALBOCICLIB
     Indication: Breast cancer female
     Dosage: 100 MG, CYCLIC (TAKE 1 TAB PO FOR 21 DAYS, THEN 7 DAYS OFF)
     Dates: start: 20200502

REACTIONS (7)
  - Product dose omission issue [Unknown]
  - Pruritus [Unknown]
  - Alopecia [Unknown]
  - Nausea [Unknown]
  - Nail disorder [Unknown]
  - Constipation [Unknown]
  - Pain [Unknown]
